FAERS Safety Report 8224024 (Version 2)
Quarter: 2012Q4

REPORT INFORMATION
  Report Type: 
  Country: US (occurrence: US)
  Receive Date: 20111102
  Receipt Date: 20121107
  Transmission Date: 20130627
  Serious: Yes (Other)
  Sender: FDA-Public Use
  Company Number: US-AMGEN-USASP2011036049

PATIENT
  Age: 63 Year
  Sex: Female

DRUGS (2)
  1. ENBREL [Suspect]
     Indication: RHEUMATOID ARTHRITIS
     Dosage: 50 mg, qwk
     Route: 058
     Dates: start: 201103, end: 201111
  2. ENBREL [Suspect]
     Dosage: 50 mg, qwk
     Dates: start: 20101101

REACTIONS (4)
  - Arthritis infective [Not Recovered/Not Resolved]
  - Scar [Recovered/Resolved]
  - Secretion discharge [Not Recovered/Not Resolved]
  - Joint swelling [Unknown]
